FAERS Safety Report 7964258-4 (Version None)
Quarter: 2011Q4

REPORT INFORMATION
  Report Type: 
  Country: None (occurrence: None)
  Receive Date: 20111206
  Receipt Date: 20111128
  Transmission Date: 20120403
  Serious: Yes (Hospitalization, Other)
  Sender: FDA-Public Use
  Company Number: AUR-APL-2011-06011

PATIENT
  Age: 36 Year
  Sex: Female
  Weight: 49 kg

DRUGS (4)
  1. LEVOTHYROXINE SODIUM [Suspect]
     Indication: PRODUCT USED FOR UNKNOWN INDICATION
     Dosage: (100 MCG,1 D)
  2. AMILORIDE HCL AND HYDROCHLOROTHIAZIDE [Suspect]
     Indication: PRODUCT USED FOR UNKNOWN INDICATION
     Dosage: 50/5MG (1 D)
  3. METFORMIN HCL [Suspect]
     Indication: PRODUCT USED FOR UNKNOWN INDICATION
     Dosage: 3000 MG (1000 MG,3 IN 1 D)
  4. BISACODYL [Suspect]
     Indication: LAXATIVE SUPPORTIVE CARE
     Dosage: (1 D)

REACTIONS (16)
  - DRUG ABUSE [None]
  - BLOOD PRESSURE DECREASED [None]
  - HORMONE LEVEL ABNORMAL [None]
  - VOMITING [None]
  - HYPONATRAEMIA [None]
  - HYPOVOLAEMIA [None]
  - CONSTIPATION [None]
  - ALOPECIA [None]
  - ASTHENIA [None]
  - HEART RATE INCREASED [None]
  - OEDEMA PERIPHERAL [None]
  - LACTIC ACIDOSIS [None]
  - HYPOKALAEMIA [None]
  - RENAL FAILURE ACUTE [None]
  - HYPOCALCAEMIA [None]
  - CONDITION AGGRAVATED [None]
